FAERS Safety Report 11295335 (Version 1)
Quarter: 2015Q3

REPORT INFORMATION
  Report Type: Spontaneous
  Country: US (occurrence: None)
  Receive Date: 20150722
  Receipt Date: 20150722
  Transmission Date: 20151125
  Serious: No
  Sender: FDA-Public Use
  Company Number: None

PATIENT
  Age: 58 Year
  Sex: Female
  Weight: 63.5 kg

DRUGS (3)
  1. FLURB/BAC/CYCLO/GABA/LIDO 20%/2%/2%/6%.2.5% [Suspect]
     Active Substance: BACLOFEN\CYCLOBENZAPRINE\FLURBIPROFEN\GABAPENTIN\LIDOCAINE
     Indication: TENDONITIS
     Route: 062
     Dates: start: 20150605, end: 20150706
  2. FLURB/BAC/CYCLO/GABA/LIDO 20%/2%/2%/6%.2.5% [Suspect]
     Active Substance: BACLOFEN\CYCLOBENZAPRINE\FLURBIPROFEN\GABAPENTIN\LIDOCAINE
     Indication: BURSITIS
     Route: 062
     Dates: start: 20150605, end: 20150706
  3. ADDERALL [Concomitant]
     Active Substance: AMPHETAMINE ASPARTATE\AMPHETAMINE SULFATE\DEXTROAMPHETAMINE SACCHARATE\DEXTROAMPHETAMINE SULFATE

REACTIONS (2)
  - Ventricular extrasystoles [None]
  - Condition aggravated [None]

NARRATIVE: CASE EVENT DATE: 20150706
